FAERS Safety Report 13152019 (Version 3)
Quarter: 2017Q1

REPORT INFORMATION
  Report Type: Spontaneous
  Country: ES (occurrence: ES)
  Receive Date: 20170125
  Receipt Date: 20170202
  Transmission Date: 20170428
  Serious: Yes (Other)
  Sender: FDA-Public Use
  Company Number: ES-PFIZER INC-2017030581

PATIENT
  Age: 57 Year
  Sex: Female

DRUGS (5)
  1. AXITINIB [Suspect]
     Active Substance: AXITINIB
     Dosage: 10 MG, 2X/DAY
     Route: 048
     Dates: start: 20140505, end: 20140901
  2. AXITINIB [Suspect]
     Active Substance: AXITINIB
     Dosage: 5 MG, 2X/DAY
     Route: 048
     Dates: start: 20140901, end: 20150727
  3. AXITINIB [Suspect]
     Active Substance: AXITINIB
     Dosage: 7 MG, EVERY 12H
     Route: 048
     Dates: start: 20140307
  4. AXITINIB [Suspect]
     Active Substance: AXITINIB
     Indication: RENAL CELL CARCINOMA
     Dosage: 5 MG, 2X/DAY
     Route: 048
     Dates: start: 20131205
  5. ZOMETA [Suspect]
     Active Substance: ZOLEDRONIC ACID
     Dosage: 3.5 MG, MONTHLY
     Route: 042
     Dates: start: 20140108, end: 20150507

REACTIONS (6)
  - Osteomyelitis [Not Recovered/Not Resolved]
  - Hypothyroidism [Unknown]
  - Bone abscess [Not Recovered/Not Resolved]
  - Ejection fraction decreased [Recovered/Resolved]
  - Osteonecrosis of jaw [Unknown]
  - Neoplasm progression [Recovered/Resolved]

NARRATIVE: CASE EVENT DATE: 201404
